FAERS Safety Report 6479929-9 (Version None)
Quarter: 2009Q4

REPORT INFORMATION
  Report Type: 
  Country: None (occurrence: None)
  Receive Date: 20091208
  Receipt Date: 20091112
  Transmission Date: 20100525
  Serious: Yes (Hospitalization)
  Sender: FDA-Public Use
  Company Number: DE-SANOFI-AVENTIS-2009SA002217

PATIENT
  Age: 56 Year
  Sex: Male

DRUGS (4)
  1. LEFLUNOMIDE [Suspect]
     Route: 048
  2. LEFLUNOMIDE [Suspect]
     Route: 048
  3. MYCOPHENOLATE MOFETIL [Concomitant]
     Indication: PROPHYLAXIS
  4. PREDNISOLONE [Concomitant]
     Indication: PROPHYLAXIS

REACTIONS (4)
  - OFF LABEL USE [None]
  - POLYOMAVIRUS-ASSOCIATED NEPHROPATHY [None]
  - RENAL IMPAIRMENT [None]
  - THERAPEUTIC RESPONSE UNEXPECTED [None]
